FAERS Safety Report 6783921-4 (Version None)
Quarter: 2010Q2

REPORT INFORMATION
  Report Type: 
  Country: None (occurrence: None)
  Receive Date: 20100622
  Receipt Date: 20100611
  Transmission Date: 20101027
  Serious: Yes (Other)
  Sender: FDA-Public Use
  Company Number: US-JNJCH-2010013752

PATIENT
  Age: 6 Year
  Sex: Female
  Weight: 21.8 kg

DRUGS (1)
  1. CHILDREN'S BENADRYL ALLERGY [Suspect]
     Indication: HYPERSENSITIVITY
     Dosage: TEXT:1 TEASPOON ONCE DAILY
     Route: 048
     Dates: start: 20100501, end: 20100501

REACTIONS (3)
  - FEELING ABNORMAL [None]
  - INCONTINENCE [None]
  - PRODUCT QUALITY ISSUE [None]
